FAERS Safety Report 24321998 (Version 1)
Quarter: 2024Q3

REPORT INFORMATION
  Report Type: Spontaneous
  Country: ES (occurrence: ES)
  Receive Date: 20240916
  Receipt Date: 20240916
  Transmission Date: 20241016
  Serious: Yes (Other)
  Sender: AMGEN
  Company Number: ES-AMGEN-ESPSP2024181636

PATIENT
  Age: 57 Year
  Sex: Male

DRUGS (1)
  1. EVOLOCUMAB [Suspect]
     Active Substance: EVOLOCUMAB
     Indication: Dyslipidaemia
     Dosage: 140 MILLIGRAM, Q2WK
     Route: 058
     Dates: start: 20231201, end: 20240125

REACTIONS (2)
  - Myalgia [Recovered/Resolved]
  - Muscle rigidity [Recovered/Resolved]

NARRATIVE: CASE EVENT DATE: 20240101
